FAERS Safety Report 20003158 (Version 2)
Quarter: 2021Q4

REPORT INFORMATION
  Report Type: Report from Study
  Country: US (occurrence: US)
  Receive Date: 20211027
  Receipt Date: 20211113
  Transmission Date: 20220303
  Serious: Yes (Other)
  Sender: FDA-Public Use
  Company Number: US-NOVARTISPH-NVSC2021US221234

PATIENT
  Age: 59 Year
  Sex: Male

DRUGS (2)
  1. TIMOLOL MALEATE [Suspect]
     Active Substance: TIMOLOL MALEATE
     Indication: Open angle glaucoma
     Dosage: 0.5 %, BID
     Route: 047
     Dates: start: 20210706, end: 20210801
  2. TIMOLOL MALEATE [Suspect]
     Active Substance: TIMOLOL MALEATE
     Indication: Ocular hypertension

REACTIONS (4)
  - Syncope [Unknown]
  - Fall [Unknown]
  - Rib fracture [Unknown]
  - Skin laceration [Unknown]

NARRATIVE: CASE EVENT DATE: 20210802
